FAERS Safety Report 22648501 (Version 3)
Quarter: 2024Q3

REPORT INFORMATION
  Report Type: Spontaneous
  Country: US (occurrence: US)
  Receive Date: 20230628
  Receipt Date: 20240730
  Transmission Date: 20241017
  Serious: No
  Sender: SANOFI AVENTIS
  Company Number: US-SA-SAC20230627000370

PATIENT
  Age: 3 Year
  Sex: Male

DRUGS (1)
  1. DUPIXENT [Suspect]
     Active Substance: DUPILUMAB
     Indication: Dermatitis atopic
     Dosage: 200 MG, Q4W
     Route: 058

REACTIONS (7)
  - Sleep disorder [Unknown]
  - Dry skin [Unknown]
  - Dry mouth [Unknown]
  - Dry skin [Unknown]
  - Post-traumatic stress disorder [Unknown]
  - Swelling of eyelid [Unknown]
  - Pruritus [Unknown]
